FAERS Safety Report 6216663-4 (Version None)
Quarter: 2009Q2

REPORT INFORMATION
  Report Type: 
  Country: None (occurrence: None)
  Receive Date: 20090605
  Receipt Date: 20090601
  Transmission Date: 20091009
  Serious: Yes (Other)
  Sender: FDA-Public Use
  Company Number: GB-BRISTOL-MYERS SQUIBB COMPANY-14648521

PATIENT
  Sex: Female

DRUGS (6)
  1. CARBOPLATIN [Suspect]
     Dosage: 1 DF: AUC (AREA UNDER CURVE) 5 ON DAY 1
     Route: 064
  2. GEMCITABINE [Suspect]
     Dosage: ONE CYCLE OF 1000 MG/M SUP(2) ON DAYS 1 AND 8.
     Route: 064
  3. STEROIDS [Concomitant]
     Route: 064
  4. ALBUTEROL [Concomitant]
     Route: 064
  5. OXYGEN [Concomitant]
     Route: 064
  6. DEXAMETHASONE [Concomitant]
     Route: 064

REACTIONS (5)
  - ANAEMIA [None]
  - ANAEMIA NEONATAL [None]
  - BRONCHOPULMONARY DYSPLASIA [None]
  - PREMATURE BABY [None]
  - STAPHYLOCOCCAL SEPSIS [None]
